FAERS Safety Report 6172270-3 (Version None)
Quarter: 2009Q2

REPORT INFORMATION
  Report Type: 
  Country: None (occurrence: None)
  Receive Date: 20090429
  Receipt Date: 20090421
  Transmission Date: 20091009
  Serious: Yes (Hospitalization, Other)
  Sender: FDA-Public Use
  Company Number: DE-JNJFOC-20090404736

PATIENT
  Age: 46 Year
  Sex: Male

DRUGS (3)
  1. TOPAMAX [Suspect]
     Indication: PARTIAL SEIZURES
     Dosage: 25MG OR 50 MG
     Route: 048
  2. ORFIRIL LONG [Concomitant]
     Indication: PARTIAL SEIZURES
     Route: 048
  3. MIRTAZAPINE [Concomitant]
     Route: 065

REACTIONS (3)
  - AUTOIMMUNE THROMBOCYTOPENIA [None]
  - GENERAL PHYSICAL HEALTH DETERIORATION [None]
  - WEIGHT DECREASED [None]
